FAERS Safety Report 4624066-9 (Version None)
Quarter: 2005Q1

REPORT INFORMATION
  Report Type: 
  Country: None (occurrence: None)
  Receive Date: 20050329
  Receipt Date: 20050324
  Transmission Date: 20050727
  Serious: Yes (Hospitalization)
  Sender: FDA-Public Use
  Company Number: TCI2004A04758

PATIENT
  Age: 71 Year
  Sex: Male

DRUGS (15)
  1. LEUPROLIDE ACETATE [Suspect]
     Indication: PROSTATE CANCER STAGE II
     Dosage: 11.25 MG (11.25 MG, 1 IN 12 WK) SUBCUTANEOUS
     Route: 058
     Dates: start: 20041125, end: 20041125
  2. LANSOPRAZOLE [Suspect]
     Indication: GASTRIC ULCER
     Dosage: SEE IMAGE
     Route: 048
     Dates: start: 20041130, end: 20041207
  3. LANSOPRAZOLE [Suspect]
     Indication: HELICOBACTER INFECTION
     Dosage: SEE IMAGE
     Route: 048
     Dates: start: 20041130, end: 20041207
  4. LANSOPRAZOLE [Suspect]
     Indication: GASTRIC ULCER
     Dosage: SEE IMAGE
     Route: 048
     Dates: start: 20041208, end: 20041227
  5. LANSOPRAZOLE [Suspect]
     Indication: HELICOBACTER INFECTION
     Dosage: SEE IMAGE
     Route: 048
     Dates: start: 20041208, end: 20041227
  6. LEUPROLIDE ACETATE [Suspect]
     Indication: PROSTATE CANCER STAGE II
     Dosage: 3.75 MG (3.75 MG, 1 IN 28 D) SUBCUTANEOUS
     Route: 058
     Dates: start: 20040513, end: 20041028
  7. CLARITHROMYCIN [Suspect]
     Indication: GASTRIC ULCER
     Dosage: 400 MG (200 MG, 2 IN 1 D) PER ORAL
     Route: 048
     Dates: start: 20041130, end: 20041207
  8. CLARITHROMYCIN [Suspect]
     Indication: HELICOBACTER INFECTION
     Dosage: 400 MG (200 MG, 2 IN 1 D) PER ORAL
     Route: 048
     Dates: start: 20041130, end: 20041207
  9. AMOXICILLIN [Suspect]
     Indication: GASTRIC ULCER
     Dosage: 1500 MG (500MG, 3 IN 1 D) PER ORAL
     Route: 048
     Dates: start: 20041130, end: 20041207
  10. AMOXICILLIN [Suspect]
     Indication: HELICOBACTER INFECTION
     Dosage: 1500 MG (500MG, 3 IN 1 D) PER ORAL
     Route: 048
     Dates: start: 20041130, end: 20041207
  11. GASTROM (ECABET MONOSODIUM) (GRANULATE) [Suspect]
     Indication: GASTRIC ULCER
     Dosage: 3 G (1.5 G, 2 IN 1 D) PER ORAL
     Route: 048
     Dates: start: 20041208, end: 20041228
  12. TROXIPIDE (TABLETS) [Concomitant]
  13. FAMOTIDINE [Concomitant]
  14. OXETACAINE (TABLETS) [Concomitant]
  15. KOLANTYL (GRANULATE) [Concomitant]

REACTIONS (11)
  - BLOOD CHOLINESTERASE DECREASED [None]
  - CARCINOEMBRYONIC ANTIGEN INCREASED [None]
  - DIABETES MELLITUS [None]
  - GLUCOSE URINE PRESENT [None]
  - HEPATIC ATROPHY [None]
  - HEPATIC FAILURE [None]
  - HEPATIC NEOPLASM [None]
  - HEPATITIS [None]
  - HOT FLUSH [None]
  - OEDEMA PERIPHERAL [None]
  - POLYP [None]
